FAERS Safety Report 24441066 (Version 2)
Quarter: 2024Q4

REPORT INFORMATION
  Report Type: Spontaneous
  Country: US (occurrence: US)
  Receive Date: 20241016
  Receipt Date: 20241017
  Transmission Date: 20250115
  Serious: No
  Sender: ROCHE
  Company Number: US-ROCHE-3468773

PATIENT
  Age: 1 Year
  Sex: Male

DRUGS (1)
  1. HEMLIBRA [Suspect]
     Active Substance: EMICIZUMAB-KXWH
     Indication: Factor VIII deficiency
     Dosage: 30 MG/ML SDV
     Route: 058
     Dates: start: 202303

REACTIONS (2)
  - Joint dislocation [Unknown]
  - Muscle injury [Unknown]

NARRATIVE: CASE EVENT DATE: 20231122
